FAERS Safety Report 21262476 (Version 1)
Quarter: 2022Q3

REPORT INFORMATION
  Report Type: Spontaneous
  Country: PT (occurrence: PT)
  Receive Date: 20220828
  Receipt Date: 20220828
  Transmission Date: 20221026
  Serious: Yes (Life-Threatening, Hospitalization, Other)
  Sender: FDA-Public Use
  Company Number: None

PATIENT
  Age: 21 Year
  Sex: Female

DRUGS (5)
  1. ONDANSETRON HYDROCHLORIDE [Suspect]
     Active Substance: ONDANSETRON HYDROCHLORIDE
     Indication: Haematemesis
  2. PANTOPRAZOLE [Suspect]
     Active Substance: PANTOPRAZOLE
     Indication: Haematemesis
  3. METAMIZOLE [Suspect]
     Active Substance: METAMIZOLE
     Indication: Abdominal pain upper
     Dosage: EXCEEDED THE RECOMMENDED DOSE
  4. IBUPROFEN [Suspect]
     Active Substance: IBUPROFEN
     Indication: Pyrexia
  5. DESLORATADINE [Concomitant]
     Active Substance: DESLORATADINE
     Indication: Vomiting
     Dosage: EXCEEDED THE RECOMMENDED DOSE

REACTIONS (17)
  - Shock haemorrhagic [Unknown]
  - Intentional product misuse [Unknown]
  - Gastrointestinal haemorrhage [Unknown]
  - Haemorrhagic erosive gastritis [Unknown]
  - Gastric disorder [Recovering/Resolving]
  - Overdose [Unknown]
  - Self-medication [Unknown]
  - Gastric haemorrhage [Recovering/Resolving]
  - Gastrointestinal erosion [Recovered/Resolved]
  - Haematemesis [Recovered/Resolved]
  - Haemorrhage [Recovered/Resolved]
  - Gastric ulcer [Recovering/Resolving]
  - Intentional product misuse [Unknown]
  - Gastritis haemorrhagic [Unknown]
  - Intentional product use issue [Unknown]
  - Gastritis erosive [Unknown]
  - Prescription drug used without a prescription [Unknown]
